FAERS Safety Report 8621478-3 (Version None)
Quarter: 2012Q3

REPORT INFORMATION
  Report Type: 
  Country: None (occurrence: None)
  Receive Date: 20120824
  Receipt Date: 20120820
  Transmission Date: 20120928
  Serious: Yes (Life-Threatening, Hospitalization)
  Sender: FDA-Public Use
  Company Number: US-ASTRAZENECA-2012SE60592

PATIENT
  Age: 32 Year
  Sex: Female

DRUGS (6)
  1. TOPAMAX [Concomitant]
  2. SEROQUEL [Suspect]
     Indication: BIPOLAR DISORDER
     Route: 048
  3. SEROQUEL [Suspect]
     Route: 048
  4. VICODIN [Concomitant]
     Indication: PAIN
     Dosage: 5/500 MG, 1 BID FOR PRN
  5. ATIVAN [Concomitant]
     Indication: ANXIETY
  6. EFFEXOR [Concomitant]

REACTIONS (15)
  - DEPRESSED MOOD [None]
  - SUICIDE ATTEMPT [None]
  - DECREASED APPETITE [None]
  - DEPRESSION [None]
  - ACTIVITIES OF DAILY LIVING IMPAIRED [None]
  - SCHIZOAFFECTIVE DISORDER [None]
  - MIGRAINE [None]
  - HALLUCINATION [None]
  - NASAL CONGESTION [None]
  - WEIGHT DECREASED [None]
  - OVERDOSE [None]
  - SUICIDAL IDEATION [None]
  - HALLUCINATIONS, MIXED [None]
  - VISUAL IMPAIRMENT [None]
  - OROPHARYNGEAL PAIN [None]
